FAERS Safety Report 25539096 (Version 1)
Quarter: 2025Q3

REPORT INFORMATION
  Report Type: Spontaneous
  Country: US (occurrence: US)
  Receive Date: 20250710
  Receipt Date: 20250710
  Transmission Date: 20251021
  Serious: Yes (Hospitalization)
  Sender: JOHNSON AND JOHNSON
  Company Number: US-JNJFOC-20250711040

PATIENT

DRUGS (1)
  1. TALQUETAMAB [Suspect]
     Active Substance: TALQUETAMAB
     Indication: Product used for unknown indication
     Route: 065

REACTIONS (8)
  - Cytokine release syndrome [Unknown]
  - Weight decreased [Unknown]
  - Skin irritation [Recovered/Resolved]
  - Dry mouth [Unknown]
  - Taste disorder [Unknown]
  - Nail discolouration [Recovered/Resolved]
  - Vision blurred [Recovered/Resolved]
  - Tooth disorder [Recovered/Resolved]

NARRATIVE: CASE EVENT DATE: 20240601
